FAERS Safety Report 7656838-0 (Version None)
Quarter: 2011Q3

REPORT INFORMATION
  Report Type: 
  Country: None (occurrence: None)
  Receive Date: 20110804
  Receipt Date: 20110705
  Transmission Date: 20111222
  Serious: No
  Sender: FDA-Public Use
  Company Number: US-BAYER-2011-058331

PATIENT
  Age: 39 Year
  Sex: Female

DRUGS (8)
  1. AVELOX [Suspect]
     Indication: RESPIRATORY TRACT INFECTION
     Dosage: DAILY DOSE 400 MG
     Route: 048
     Dates: start: 20110513
  2. AVELOX [Suspect]
     Dosage: UNK
     Dates: start: 20110614, end: 20110623
  3. PREDNISOLONE [Concomitant]
     Dosage: UNK
     Dates: start: 20110610, end: 20110614
  4. TRIAMCINOLONE [Concomitant]
     Dosage: UNK
     Dates: start: 20110627
  5. PREDNISOLONE [Concomitant]
     Dosage: UNK
     Dates: start: 20110617, end: 20110620
  6. BACTROBAN [Concomitant]
     Dosage: UNK
     Dates: start: 20110628
  7. HYDRAZINE [Concomitant]
     Dosage: UNK
     Dates: start: 20110617, end: 20110620
  8. ZYRTEC [Concomitant]
     Dosage: UNK
     Dates: start: 20110628

REACTIONS (3)
  - ERYTHEMA MULTIFORME [None]
  - PRURITUS [None]
  - DERMATITIS INFECTED [None]
